FAERS Safety Report 19676085 (Version 1)
Quarter: 2021Q3

REPORT INFORMATION
  Report Type: Not Available
  Country: None (occurrence: None)
  Receive Date: 20210809
  Receipt Date: 20210809
  Transmission Date: 20211014
  Serious: Yes (Death)
  Sender: FDA-Public Use
  Company Number: US-AKORN-170247

PATIENT
  Age: 77 Year
  Sex: Male

DRUGS (1)
  1. LACTULOSE SOLUTION, USP [Suspect]
     Active Substance: LACTULOSE

REACTIONS (2)
  - Abdominal pain [Fatal]
  - Death [Fatal]
